FAERS Safety Report 6186971-4 (Version None)
Quarter: 2009Q2

REPORT INFORMATION
  Report Type: 
  Country: None (occurrence: None)
  Receive Date: 20090508
  Receipt Date: 20090508
  Transmission Date: 20091009
  Serious: Yes (Other)
  Sender: FDA-Public Use
  Company Number: None

PATIENT
  Sex: Male

DRUGS (1)
  1. INVEGA [Suspect]
     Indication: SCHIZOPHRENIA
     Dosage: 3 MG AND 6 MG P.O. PO
     Route: 048
     Dates: start: 20090223, end: 20090325

REACTIONS (6)
  - EJACULATION DELAYED [None]
  - EJACULATION DISORDER [None]
  - FATIGUE [None]
  - PAIN [None]
  - SEMEN DISCOLOURATION [None]
  - SEXUAL DYSFUNCTION [None]
